FAERS Safety Report 7895900-4 (Version None)
Quarter: 2011Q4

REPORT INFORMATION
  Report Type: 
  Country: None (occurrence: None)
  Receive Date: 20111104
  Receipt Date: 20111104
  Transmission Date: 20120403
  Serious: Yes (Hospitalization)
  Sender: FDA-Public Use
  Company Number: None

PATIENT
  Sex: Male
  Weight: 80.7 kg

DRUGS (2)
  1. PEMETREXED [Suspect]
     Indication: NON-SMALL CELL LUNG CANCER
     Dosage: 375 MG Q 3 WEEKS IV
     Route: 042
     Dates: start: 20110907
  2. ERLOTINIB HYDROCHLORIDE [Suspect]
     Indication: NON-SMALL CELL LUNG CANCER
     Dosage: 100MG QD,DAYS 2-16/CYCLE PO
     Route: 048
     Dates: start: 20110908, end: 20111009

REACTIONS (7)
  - MELAENA [None]
  - VOMITING [None]
  - BLOOD CREATINE INCREASED [None]
  - ANAEMIA [None]
  - ASTHENIA [None]
  - GASTRITIS [None]
  - OESOPHAGEAL ULCER [None]
